FAERS Safety Report 17390886 (Version 1)
Quarter: 2020Q1

REPORT INFORMATION
  Report Type: Spontaneous
  Country: US (occurrence: US)
  Receive Date: 20200207
  Receipt Date: 20200207
  Transmission Date: 20200409
  Serious: Yes (Hospitalization)
  Sender: FDA-Public Use
  Company Number: US-CUMBERLAND-2020-US-000007

PATIENT
  Age: 33 Year
  Sex: Male
  Weight: 130 kg

DRUGS (1)
  1. ACETADOTE [Suspect]
     Active Substance: ACETYLCYSTEINE

REACTIONS (2)
  - Acidosis [Recovered/Resolved]
  - Renal impairment [Recovering/Resolving]
